FAERS Safety Report 9186272 (Version 2)
Quarter: 2013Q2

REPORT INFORMATION
  Report Type: Report from Study
  Country: CA (occurrence: CA)
  Receive Date: 20130325
  Receipt Date: 20130403
  Transmission Date: 20140414
  Serious: Yes (Death)
  Sender: FDA-Public Use
  Company Number: PHHY2013CA028492

PATIENT
  Sex: Male

DRUGS (1)
  1. CLOZARIL [Suspect]
     Indication: DEMENTIA
     Dosage: 75 MG DAILY
     Route: 048
     Dates: start: 20120919, end: 20130318

REACTIONS (3)
  - Dementia Alzheimer^s type [Fatal]
  - Fluid intake reduced [Fatal]
  - Aphagia [Fatal]
